FAERS Safety Report 6819680-6 (Version None)
Quarter: 2010Q2

REPORT INFORMATION
  Report Type: 
  Country: None (occurrence: None)
  Receive Date: 20100630
  Receipt Date: 20100616
  Transmission Date: 20101027
  Serious: Yes (Death, Life-Threatening, Hospitalization, Other)
  Sender: FDA-Public Use
  Company Number: 2009AC000336

PATIENT
  Age: 73 Year
  Sex: Female

DRUGS (76)
  1. DIGOXIN [Suspect]
     Dosage: .125 MG;QD;PO
     Route: 048
     Dates: start: 20040504, end: 20050710
  2. DIGOXIN [Suspect]
     Indication: ATRIAL FIBRILLATION
     Dosage: 0.5 MG;BID;IV
     Route: 042
     Dates: start: 20040427, end: 20040427
  3. DIGOXIN [Suspect]
     Dosage: 0.250 MG;QD;PO
     Route: 048
     Dates: start: 20050711, end: 20060830
  4. DIGOXIN [Suspect]
     Dosage: 0.125 MG;QD;PO
     Route: 048
     Dates: start: 20060831, end: 20071019
  5. DIGOXIN [Suspect]
     Dosage: 0.125 MG;QD;PO
     Route: 048
     Dates: start: 20071022, end: 20080428
  6. PLAVIX [Concomitant]
  7. PREDNISONE [Concomitant]
  8. VYTORIN [Concomitant]
  9. MICRO-K [Concomitant]
  10. CORDARONE [Concomitant]
  11. ASPIRIN [Concomitant]
  12. AMIODARONE HCL [Concomitant]
  13. TRAMADOL [Concomitant]
  14. POTASSIUM [Concomitant]
  15. NYSTATIN [Concomitant]
  16. BENEFIBERM PACERONE [Concomitant]
  17. ZOCOR [Concomitant]
  18. FLEXERIL [Concomitant]
  19. LIDODERM [Concomitant]
  20. ERGOCALCIFEROL [Concomitant]
  21. DURAGESIC-100 [Concomitant]
  22. DARVOCET [Concomitant]
  23. MINITRAN [Concomitant]
  24. GLYCOLAX [Concomitant]
  25. LISINOPRIL [Concomitant]
  26. FUROSEMIDE [Concomitant]
  27. AMIODARONE HCL [Concomitant]
  28. PROPRANOLOL [Concomitant]
  29. NITROGLYCERIN [Concomitant]
  30. ERYTHROMYCIN [Concomitant]
  31. LIPITOR [Concomitant]
  32. KETOCONAZOLE [Concomitant]
  33. PEPCID [Concomitant]
  34. PRAVACHOL [Concomitant]
  35. AVELOX [Concomitant]
  36. LORTAB [Concomitant]
  37. METAMUCIL-2 [Concomitant]
  38. PROTONIX [Concomitant]
  39. NITRO-DUR [Concomitant]
  40. INDERAL [Concomitant]
  41. MIRALAX [Concomitant]
  42. VALIUM [Concomitant]
  43. MORPHINE [Concomitant]
  44. ZOFRAN [Concomitant]
  45. ATROPINE [Concomitant]
  46. NITROSTAT [Concomitant]
  47. HEPARIN [Concomitant]
  48. CEFAZOLIN [Concomitant]
  49. CEFEPIME [Concomitant]
  50. EPINEPHRINE [Concomitant]
  51. LIDOCAINE [Concomitant]
  52. LOVENOX [Concomitant]
  53. CLOTRIMAZOLE [Concomitant]
  54. VANCOMYCIN [Concomitant]
  55. AUGMENTIN '125' [Concomitant]
  56. COLACE [Concomitant]
  57. SENOKOT [Concomitant]
  58. CARVEDILOL [Concomitant]
  59. SIMVASTATIN [Concomitant]
  60. RENAL CAPS [Concomitant]
  61. MULTI-VITAMIN [Concomitant]
  62. SENNA [Concomitant]
  63. LACTULOSE [Concomitant]
  64. VICODIN [Concomitant]
  65. IMDUR [Concomitant]
  66. ARANESP [Concomitant]
  67. WYGESIC [Concomitant]
  68. SKELAXIN [Concomitant]
  69. LOPRESSOR [Concomitant]
  70. KEFLEX [Concomitant]
  71. SOLU-MEDROL [Concomitant]
  72. NEXIUM [Concomitant]
  73. OMEPRAZOLE [Concomitant]
  74. DOPAMINE HCL [Concomitant]
  75. NEO-SYNEPHRINOL [Concomitant]
  76. HALDOL [Concomitant]

REACTIONS (120)
  - ABASIA [None]
  - ABDOMINAL PAIN [None]
  - ALOPECIA [None]
  - ANAEMIA [None]
  - AORTIC ARTERIOSCLEROSIS [None]
  - AORTIC VALVE INCOMPETENCE [None]
  - ARTERIOSCLEROSIS CORONARY ARTERY [None]
  - ARTHRALGIA [None]
  - ASCITES [None]
  - ASTHENIA [None]
  - ATELECTASIS [None]
  - ATRIAL FLUTTER [None]
  - ATRIOVENTRICULAR BLOCK [None]
  - ATRIOVENTRICULAR BLOCK COMPLETE [None]
  - ATRIOVENTRICULAR BLOCK FIRST DEGREE [None]
  - BACK PAIN [None]
  - BALANCE DISORDER [None]
  - BLOOD CULTURE POSITIVE [None]
  - BLOOD GLUCOSE INCREASED [None]
  - BLOOD POTASSIUM DECREASED [None]
  - BREAST CANCER [None]
  - BUNDLE BRANCH BLOCK RIGHT [None]
  - CARDIAC ARREST [None]
  - CARDIAC FAILURE CONGESTIVE [None]
  - CARDIAC MURMUR [None]
  - CARDIOACTIVE DRUG LEVEL INCREASED [None]
  - CARDIOMEGALY [None]
  - CAROTID ARTERY ANEURYSM [None]
  - CAROTID BRUIT [None]
  - CELLULITIS [None]
  - CEREBRAL ATROPHY [None]
  - CHEST PAIN [None]
  - CONDITION AGGRAVATED [None]
  - CONFUSIONAL STATE [None]
  - CONSTIPATION [None]
  - CONTUSION [None]
  - CULTURE WOUND POSITIVE [None]
  - DIARRHOEA [None]
  - DISEASE COMPLICATION [None]
  - DIZZINESS [None]
  - DRY MOUTH [None]
  - DYSPHONIA [None]
  - ECONOMIC PROBLEM [None]
  - EJECTION FRACTION DECREASED [None]
  - ENTEROCOCCAL INFECTION [None]
  - ERYTHEMA [None]
  - EXCORIATION [None]
  - FALL [None]
  - FATIGUE [None]
  - GASTROINTESTINAL DISORDER [None]
  - GENERALISED OEDEMA [None]
  - HAEMATURIA [None]
  - HAEMODIALYSIS [None]
  - HAEMORRHAGIC DISORDER [None]
  - HAEMORRHOIDAL HAEMORRHAGE [None]
  - HALLUCINATIONS, MIXED [None]
  - HEART RATE INCREASED [None]
  - HEART SOUNDS ABNORMAL [None]
  - HEPATIC NEOPLASM [None]
  - HIATUS HERNIA [None]
  - HYPERKALAEMIA [None]
  - HYPOTENSION [None]
  - INADEQUATE ANALGESIA [None]
  - INSOMNIA [None]
  - JOINT SWELLING [None]
  - KLEBSIELLA INFECTION [None]
  - LEFT VENTRICULAR DYSFUNCTION [None]
  - LOSS OF CONSCIOUSNESS [None]
  - MASS [None]
  - MITRAL VALVE CALCIFICATION [None]
  - MITRAL VALVE INCOMPETENCE [None]
  - MITRAL VALVE SCLEROSIS [None]
  - MULTIPLE INJURIES [None]
  - MYOCARDIAL INFARCTION [None]
  - NECK PAIN [None]
  - NEPHROLITHIASIS [None]
  - NODAL RHYTHM [None]
  - OBESITY [None]
  - OEDEMA [None]
  - OSTEOARTHRITIS [None]
  - OSTEOPENIA [None]
  - PAIN IN EXTREMITY [None]
  - PALLOR [None]
  - PALPITATIONS [None]
  - PLEURAL EFFUSION [None]
  - POLLAKIURIA [None]
  - PSEUDOMONAS INFECTION [None]
  - PULMONARY CONGESTION [None]
  - PULMONARY HYPERTENSION [None]
  - PYREXIA [None]
  - RALES [None]
  - RASH [None]
  - REFUSAL OF TREATMENT BY PATIENT [None]
  - RENAL DISORDER [None]
  - RENAL FAILURE ACUTE [None]
  - RESTLESSNESS [None]
  - RETROPERITONEAL NEOPLASM [None]
  - RHONCHI [None]
  - RIGHT VENTRICULAR FAILURE [None]
  - SICK SINUS SYNDROME [None]
  - SIGMOIDOSCOPY [None]
  - SIGMOIDOSCOPY ABNORMAL [None]
  - SINUS HEADACHE [None]
  - SKIN LESION [None]
  - SOFT TISSUE DISORDER [None]
  - SPINAL COLUMN STENOSIS [None]
  - SPINAL COMPRESSION FRACTURE [None]
  - SPINAL DEFORMITY [None]
  - SPINAL OSTEOARTHRITIS [None]
  - STAPHYLOCOCCAL INFECTION [None]
  - STASIS DERMATITIS [None]
  - SURGERY [None]
  - SYNCOPE [None]
  - THERAPEUTIC AGENT TOXICITY [None]
  - TRICUSPID VALVE INCOMPETENCE [None]
  - TUBULOINTERSTITIAL NEPHRITIS [None]
  - UNEVALUABLE EVENT [None]
  - URINARY INCONTINENCE [None]
  - VENTRICULAR EXTRASYSTOLES [None]
  - WEIGHT DECREASED [None]
